FAERS Safety Report 7302243-6 (Version None)
Quarter: 2011Q1

REPORT INFORMATION
  Report Type: 
  Country: None (occurrence: None)
  Receive Date: 20110218
  Receipt Date: 20110205
  Transmission Date: 20110831
  Serious: Yes (Death, Hospitalization, Other)
  Sender: FDA-Public Use
  Company Number: US-CELGENEUS-163-21880-11020936

PATIENT
  Sex: Male

DRUGS (39)
  1. DILAUDID [Concomitant]
     Route: 048
  2. INSULIN [Concomitant]
     Dosage: 100UNIT/ML
     Route: 058
  3. HEPARIN [Concomitant]
     Dosage: 600UNIT
     Route: 051
  4. REVLIMID [Suspect]
     Indication: MULTIPLE MYELOMA
     Route: 048
     Dates: start: 20101101, end: 20101203
  5. DILAUDID [Concomitant]
     Route: 048
  6. FLAGYL [Concomitant]
     Route: 048
     Dates: start: 20101214, end: 20101217
  7. CARDIZEM [Concomitant]
     Route: 051
  8. DIGOXIN [Concomitant]
     Route: 048
     Dates: start: 20101214
  9. LOPRESSOR [Concomitant]
     Route: 048
  10. AREDIA [Concomitant]
     Route: 065
  11. LOMOTIL [Concomitant]
     Dosage: 1-2  2.5-0.025MG
     Route: 048
  12. LISINOPRIL [Concomitant]
     Route: 048
  13. AMIODARONE [Concomitant]
     Route: 051
  14. PRILOSEC [Concomitant]
     Route: 048
  15. SENOKOT [Concomitant]
     Dosage: 8.6-50MG
     Route: 065
  16. DILAUDID [Concomitant]
     Route: 048
  17. FENTANYL [Concomitant]
     Route: 062
  18. NEXIUM [Concomitant]
     Route: 048
  19. AMIODARONE [Concomitant]
     Route: 051
  20. AMIODARONE [Concomitant]
     Route: 048
     Dates: start: 20101214
  21. TYLENOL [Concomitant]
     Indication: PAIN
     Route: 065
  22. POTASSIUM [Concomitant]
     Dosage: 20-40MEQ
     Route: 048
  23. AMLODIPINE [Concomitant]
     Route: 048
  24. LOVENOX [Concomitant]
     Route: 058
  25. HEPARIN [Concomitant]
     Dosage: 100UNIT/ML
     Route: 051
  26. ETODOLAC [Concomitant]
     Route: 048
  27. DIGOXIN [Concomitant]
     Route: 051
  28. ZESTRIL [Concomitant]
     Route: 065
  29. DURAGESIC-50 [Concomitant]
     Route: 062
  30. MOM [Concomitant]
     Indication: CONSTIPATION
     Route: 048
  31. VELCADE [Concomitant]
     Route: 065
  32. LASIX [Concomitant]
     Route: 065
  33. DULCOLAX [Concomitant]
     Indication: CONSTIPATION
     Route: 054
  34. KYTRIL [Concomitant]
     Route: 048
  35. DIGOXIN [Concomitant]
     Dosage: 0.25
     Route: 051
  36. NORVASC [Concomitant]
     Route: 065
  37. COLACE [Concomitant]
     Route: 065
  38. DIFLUCAN [Concomitant]
     Indication: ORAL CANDIDIASIS
     Route: 065
  39. ZOFRAN [Concomitant]
     Route: 048

REACTIONS (6)
  - NON-HODGKIN'S LYMPHOMA [None]
  - HYPOKALAEMIA [None]
  - ATRIAL FIBRILLATION [None]
  - URINARY TRACT INFECTION [None]
  - MULTIPLE MYELOMA [None]
  - HYPERCALCAEMIA [None]
